FAERS Safety Report 8589784-9 (Version None)
Quarter: 2012Q3

REPORT INFORMATION
  Report Type: 
  Country: None (occurrence: None)
  Receive Date: 20120813
  Receipt Date: 20120803
  Transmission Date: 20120928
  Serious: Yes (Other)
  Sender: FDA-Public Use
  Company Number: BR-ROCHE-1098018

PATIENT
  Age: 28 Year
  Sex: Male
  Weight: 90 kg

DRUGS (3)
  1. CLONAZEPAM [Suspect]
     Indication: PANIC DISORDER
     Route: 048
     Dates: start: 20050101
  2. HALDOL [Concomitant]
     Indication: NERVOUSNESS
  3. HYDROCHLOROTHIAZIDE [Concomitant]
     Indication: HYPERTENSION

REACTIONS (5)
  - DIZZINESS [None]
  - HALLUCINATION [None]
  - TYPE 1 DIABETES MELLITUS [None]
  - PRURITUS GENERALISED [None]
  - DRY MOUTH [None]
